FAERS Safety Report 7023970-4 (Version None)
Quarter: 2010Q4

REPORT INFORMATION
  Report Type: 
  Country: None (occurrence: None)
  Receive Date: 20101001
  Receipt Date: 20100921
  Transmission Date: 20110411
  Serious: Yes (Hospitalization)
  Sender: FDA-Public Use
  Company Number: FR-NOVOPROD-315202

PATIENT
  Age: 83 Year
  Sex: Female

DRUGS (10)
  1. LEVEMIR [Suspect]
     Indication: TYPE 1 DIABETES MELLITUS
     Dosage: 27 IU, QD
     Route: 058
  2. LEVEMIR [Suspect]
     Dosage: 26 IU, QD
     Route: 058
  3. NOVORAPID [Suspect]
     Indication: TYPE 1 DIABETES MELLITUS
     Dosage: 4 IU, QD
     Route: 058
  4. VALSARTAN  AND HYDROCHLOROTHIAZIDE [Suspect]
     Dosage: 80 MG, QD
     Dates: end: 20100823
  5. LERCANIDIPINE [Suspect]
     Indication: HYPERTENSION
     Dosage: 10 MG, QD
     Dates: end: 20100823
  6. LEVOTHYROXINE SODIUM [Concomitant]
     Dosage: 150 UG, QD
  7. VITAMIN B12                        /00056201/ [Concomitant]
     Dosage: 1 INJECTION/MONTH
  8. MOPRAL                             /00661201/ [Concomitant]
     Dosage: 40 MG, QD
  9. CRESTOR [Concomitant]
     Dosage: 5 MG, QD
  10. PLAVIX [Concomitant]
     Dosage: 75 MG, QD

REACTIONS (3)
  - HYPOGLYCAEMIA [None]
  - ORTHOSTATIC HYPOTENSION [None]
  - RENAL FAILURE [None]
